FAERS Safety Report 24418805 (Version 2)
Quarter: 2024Q4

REPORT INFORMATION
  Report Type: Report from Study
  Country: AT (occurrence: AT)
  Receive Date: 20241009
  Receipt Date: 20241016
  Transmission Date: 20250115
  Serious: Yes (Other)
  Sender: ABBVIE
  Company Number: AT-ABBVIE-5428509

PATIENT
  Age: 58 Year
  Sex: Female

DRUGS (5)
  1. HUMIRA [Suspect]
     Active Substance: ADALIMUMAB
     Indication: Axial spondyloarthritis
     Route: 058
     Dates: start: 2021
  2. HUMIRA [Suspect]
     Active Substance: ADALIMUMAB
     Route: 058
  3. CALCIUM\VITAMINS [Concomitant]
     Active Substance: CALCIUM\VITAMINS
     Indication: Product used for unknown indication
  4. BEMPEDOIC ACID [Concomitant]
     Active Substance: BEMPEDOIC ACID
     Indication: Product used for unknown indication
  5. LITHIUM [Concomitant]
     Active Substance: LITHIUM
     Indication: Product used for unknown indication

REACTIONS (9)
  - Cutaneous T-cell lymphoma [Not Recovered/Not Resolved]
  - Blood cholesterol increased [Not Recovered/Not Resolved]
  - Temperature intolerance [Not Recovered/Not Resolved]
  - Hot flush [Not Recovered/Not Resolved]
  - Chronic pigmented purpura [Not Recovered/Not Resolved]
  - Skin reaction [Recovered/Resolved]
  - Rash pruritic [Unknown]
  - Arthritis [Not Recovered/Not Resolved]
  - Rash macular [Unknown]

NARRATIVE: CASE EVENT DATE: 20210101
